FAERS Safety Report 9226799 (Version 1)
Quarter: 2013Q2

REPORT INFORMATION
  Report Type: Spontaneous
  Country: US (occurrence: None)
  Receive Date: 20130410
  Receipt Date: 20130410
  Transmission Date: 20140414
  Serious: Yes (Hospitalization)
  Sender: FDA-Public Use
  Company Number: None

PATIENT
  Age: 70 Year
  Sex: Male
  Weight: 86.5 kg

DRUGS (17)
  1. VORICONAZOLE [Suspect]
     Indication: ASPERGILLUS INFECTION
     Dosage: RECENT USE 490 MG Q12HR IVPS
  2. ALLOPURINOL [Concomitant]
  3. ASA [Concomitant]
  4. LEVOTHYROXINE [Concomitant]
  5. FUROSEMIDE [Concomitant]
  6. DEXAMETHASONE [Concomitant]
  7. CEFEPIME [Concomitant]
  8. LOMOTIL [Concomitant]
  9. CADOPENTETATE [Concomitant]
  10. OMNIPAQUE [Concomitant]
  11. LORAZEPAM [Concomitant]
  12. APAP [Concomitant]
  13. LORAZEPAM [Concomitant]
  14. INSULIN HUMALOG [Concomitant]
  15. PEPCID [Concomitant]
  16. VIT K ANTAGONISTS [Concomitant]
  17. MAG OX [Concomitant]

REACTIONS (5)
  - Renal failure acute [None]
  - General physical health deterioration [None]
  - Respiratory failure [None]
  - Sepsis [None]
  - Pancytopenia [None]
